FAERS Safety Report 11987516 (Version 1)
Quarter: 2016Q1

REPORT INFORMATION
  Report Type: Spontaneous
  Country: US (occurrence: US)
  Receive Date: 20160202
  Receipt Date: 20160202
  Transmission Date: 20160526
  Serious: No
  Sender: FDA-Public Use
  Company Number: US-UCBSA-2015035441

PATIENT
  Sex: Female

DRUGS (24)
  1. KEPPRA [Suspect]
     Active Substance: LEVETIRACETAM
     Dosage: 1 ML, 3X/DAY (TID)
     Dates: start: 20090513, end: 20090825
  2. NEXIUM [Concomitant]
     Active Substance: ESOMEPRAZOLE MAGNESIUM
     Indication: PRODUCT USED FOR UNKNOWN INDICATION
     Dosage: 20 MG, 2X/DAY (BID)
     Dates: start: 20090326
  3. SENNA [Concomitant]
     Active Substance: SENNA LEAF\SENNOSIDES\SENNOSIDES A AND B
     Indication: BOWEL MOVEMENT IRREGULARITY
     Dosage: UNK
  4. COQ10 [Concomitant]
     Active Substance: UBIDECARENONE
     Indication: UNEVALUABLE EVENT
     Dosage: UNK
  5. PEDIALYTE [Concomitant]
     Active Substance: POTASSIUM CITRATE\SODIUM CITRATE\ZINC
     Indication: PRODUCT USED FOR UNKNOWN INDICATION
     Dosage: UNK
  6. ZONEGRAN [Concomitant]
     Active Substance: ZONISAMIDE
     Indication: SEIZURE
     Dosage: 150MG
     Dates: start: 20070918, end: 20080707
  7. TOPAMAX [Concomitant]
     Active Substance: TOPIRAMATE
     Indication: SEIZURE
     Dosage: 90MG 2X/DAY MAX DOSE, 60MG 2X/DAY HOLDING DOSE
     Dates: start: 20081016, end: 20091202
  8. RIBOFLAVIN [Concomitant]
     Active Substance: RIBOFLAVIN
     Indication: UNEVALUABLE EVENT
     Dosage: UNK
  9. DEPAKENE [Concomitant]
     Active Substance: VALPROIC ACID
     Indication: SEIZURE
     Dosage: 300MG
     Dates: start: 20080125, end: 20080215
  10. CLOBAZAM [Concomitant]
     Active Substance: CLOBAZAM
     Indication: SEIZURE
     Dosage: 1/2 TAB AM AND 1 TAB PM
     Dates: start: 20090627
  11. MILK OF MAGNESIA [Concomitant]
     Active Substance: MAGNESIUM HYDROXIDE
     Indication: BOWEL MOVEMENT IRREGULARITY
     Dosage: 10ML
  12. CLONIDINE. [Concomitant]
     Active Substance: CLONIDINE
     Indication: PRODUCT USED FOR UNKNOWN INDICATION
  13. KLONOPIN [Concomitant]
     Active Substance: CLONAZEPAM
     Indication: SEIZURE
     Dosage: 0.062 MG, 2X/DAY (BID)
     Dates: start: 20080325, end: 20090507
  14. FELBATOL [Concomitant]
     Active Substance: FELBAMATE
     Indication: SEIZURE
     Dosage: 600MG
     Dates: start: 20080402, end: 20080510
  15. LAMICTAL [Concomitant]
     Active Substance: LAMOTRIGINE
     Indication: SEIZURE
     Dosage: 1MG/ DAY + 2MG EVERY OTHER DAY
     Dates: start: 20090302, end: 20090413
  16. ACTH [Concomitant]
     Active Substance: CORTICOTROPIN
     Indication: SEIZURE
     Dosage: 7 WEEKS LOW PROTOCOL, 30 UNITS/DAY
     Dates: start: 20080219, end: 20080407
  17. SABRIL [Concomitant]
     Active Substance: VIGABATRIN
     Indication: SEIZURE
     Dosage: 1000 MG, 2X/DAY (BID)
     Dates: start: 20080701, end: 20090216
  18. BANZEL [Concomitant]
     Active Substance: RUFINAMIDE
     Indication: SEIZURE
     Dosage: 1.5 DF, 2X/DAY (BID), 600MG MAX DOSE
     Dates: start: 20090908
  19. AMOXICILLIN. [Concomitant]
     Active Substance: AMOXICILLIN
     Indication: PROPHYLAXIS
     Dosage: UNK
     Dates: start: 201001
  20. NEURONTIN [Concomitant]
     Active Substance: GABAPENTIN
     Indication: PRODUCT USED FOR UNKNOWN INDICATION
     Dosage: UNK
     Dates: start: 20110125
  21. KEPPRA [Suspect]
     Active Substance: LEVETIRACETAM
     Indication: SEIZURE
     Dosage: 200MG
     Dates: start: 20080110, end: 20080124
  22. NORTRIPTYLINE [Concomitant]
     Active Substance: NORTRIPTYLINE
     Indication: VOMITING
     Dosage: 7.5 MG, 2X/DAY (BID)
     Dates: start: 20101026
  23. FOLIC ACID. [Concomitant]
     Active Substance: FOLIC ACID
     Indication: UNEVALUABLE EVENT
     Dosage: UNK
  24. MIRALAX [Concomitant]
     Active Substance: POLYETHYLENE GLYCOL 3350
     Indication: BOWEL MOVEMENT IRREGULARITY
     Dosage: UNK

REACTIONS (8)
  - Feeling abnormal [Unknown]
  - Irritability [Unknown]
  - Pyrexia [Unknown]
  - Myoclonus [Unknown]
  - Drug ineffective [Unknown]
  - Somnolence [Unknown]
  - Tension [Unknown]
  - Nausea [Unknown]

NARRATIVE: CASE EVENT DATE: 201510
